FAERS Safety Report 12218420 (Version 1)
Quarter: 2016Q1

REPORT INFORMATION
  Report Type: Report from Study
  Country: US (occurrence: US)
  Receive Date: 20160329
  Receipt Date: 20160329
  Transmission Date: 20160526
  Serious: Yes (Death, Life-Threatening, Hospitalization)
  Sender: FDA-Public Use
  Company Number: US-EMD SERONO-E2B_80004651

PATIENT
  Age: 55 Year
  Sex: Female
  Weight: 73 kg

DRUGS (4)
  1. REBIF [Suspect]
     Active Substance: INTERFERON BETA-1A
     Route: 058
     Dates: start: 201406, end: 20150720
  2. REBIF [Suspect]
     Active Substance: INTERFERON BETA-1A
     Route: 058
     Dates: start: 20151130, end: 20151231
  3. REBIF [Suspect]
     Active Substance: INTERFERON BETA-1A
     Indication: PRODUCT USED FOR UNKNOWN INDICATION
     Route: 058
     Dates: start: 20040602
  4. DEXILANT [Concomitant]
     Active Substance: DEXLANSOPRAZOLE
     Indication: GASTROOESOPHAGEAL REFLUX DISEASE

REACTIONS (20)
  - Fall [Recovered/Resolved]
  - Aspiration [Unknown]
  - Regurgitation [Unknown]
  - Intestinal obstruction [Unknown]
  - Blood pressure immeasurable [Unknown]
  - Nausea [Not Recovered/Not Resolved]
  - Gait disturbance [Not Recovered/Not Resolved]
  - Intestinal perforation [Recovered/Resolved]
  - Dehydration [Recovered/Resolved]
  - Pyrexia [Unknown]
  - Septic shock [Fatal]
  - Malaise [Not Recovered/Not Resolved]
  - Pneumonia [Fatal]
  - Cardiac failure congestive [Fatal]
  - Post procedural infection [Recovered/Resolved]
  - Haemorrhage [Recovered/Resolved]
  - Gastrointestinal stoma complication [Unknown]
  - Procedural pain [Not Recovered/Not Resolved]
  - Hip fracture [Recovering/Resolving]
  - Vomiting [Recovered/Resolved]

NARRATIVE: CASE EVENT DATE: 20150128
